FAERS Safety Report 6132710-2 (Version None)
Quarter: 2009Q1

REPORT INFORMATION
  Report Type: 
  Country: None (occurrence: None)
  Receive Date: 20090324
  Receipt Date: 20090324
  Transmission Date: 20090719
  Serious: Yes (Other)
  Sender: FDA-Public Use
  Company Number: None

PATIENT
  Sex: Male
  Weight: 86.1834 kg

DRUGS (2)
  1. RANIBIZUMAB 10MG/ML, GENENTECH, INC. [Suspect]
     Indication: MACULAR DEGENERATION
     Dosage: 0.05ML MONTHLY INTRAVITREAL
     Dates: start: 20090114
  2. RANIBIZUMAB 10MG/ML, GENENTECH, INC. [Suspect]
     Indication: MACULAR DEGENERATION
     Dosage: 0.05ML MONTHLY INTRAVITREAL
     Dates: start: 20090217

REACTIONS (2)
  - RETINAL HAEMORRHAGE [None]
  - VITREOUS HAEMORRHAGE [None]
